FAERS Safety Report 11060803 (Version 1)
Quarter: 2015Q2

REPORT INFORMATION
  Report Type: Report from Study
  Country: FR (occurrence: FR)
  Receive Date: 20150423
  Receipt Date: 20150423
  Transmission Date: 20150821
  Serious: Yes (Hospitalization)
  Sender: FDA-Public Use
  Company Number: FR-BRISTOL-MYERS SQUIBB COMPANY-15874936

PATIENT
  Age: 73 Year
  Sex: Male

DRUGS (7)
  1. IXPRIM [Concomitant]
     Active Substance: ACETAMINOPHEN\TRAMADOL HYDROCHLORIDE
     Indication: PRODUCT USED FOR UNKNOWN INDICATION
     Dosage: UNK
     Route: 065
     Dates: start: 20110604, end: 20110608
  2. PRIMPERAN [Concomitant]
     Active Substance: METOCLOPRAMIDE HYDROCHLORIDE
     Indication: PRODUCT USED FOR UNKNOWN INDICATION
     Dosage: 01JUN11-01JUN11 AGAIN 01JUN-07JUN11.
     Route: 042
     Dates: start: 20110601, end: 20110607
  3. ZOPHREN [Concomitant]
     Active Substance: ONDANSETRON
     Indication: PRODUCT USED FOR UNKNOWN INDICATION
     Dosage: 28JUN11-02JUL11 AGAIN ON 04JUL11-CONT
     Route: 065
     Dates: start: 20110628
  4. FORTIMEL [Concomitant]
     Active Substance: DIETARY SUPPLEMENT
     Indication: PRODUCT USED FOR UNKNOWN INDICATION
     Dosage: UNK
     Route: 065
     Dates: start: 20110604
  5. IPILIMUMAB [Suspect]
     Active Substance: IPILIMUMAB
     Indication: MALIGNANT MELANOMA
     Dosage: 1 DF = 250 UNIT NOS,800MG ON 19MAY11 AND 750MG ON 09JUN11.
     Route: 042
     Dates: start: 20110519, end: 20110609
  6. DECAPEPTYL [Concomitant]
     Active Substance: TRIPTORELIN ACETATE
     Indication: PRODUCT USED FOR UNKNOWN INDICATION
     Dosage: UNK
     Route: 065
     Dates: start: 20060713
  7. MOPRAL [Concomitant]
     Active Substance: OMEPRAZOLE SODIUM
     Indication: PRODUCT USED FOR UNKNOWN INDICATION
     Dosage: UNK
     Route: 065
     Dates: start: 20110601, end: 20110607

REACTIONS (6)
  - Nausea [Recovered/Resolved]
  - Dehydration [Unknown]
  - Decreased appetite [Recovered/Resolved]
  - Fatigue [Recovered/Resolved]
  - Vomiting [Unknown]
  - Weight decreased [Unknown]

NARRATIVE: CASE EVENT DATE: 20110621
